FAERS Safety Report 9316752 (Version 1)
Quarter: 2013Q2

REPORT INFORMATION
  Report Type: Spontaneous
  Country: US (occurrence: US)
  Receive Date: 20130530
  Receipt Date: 20130530
  Transmission Date: 20140414
  Serious: No
  Sender: FDA-Public Use
  Company Number: US-MYLANLABS-2012S1013858

PATIENT
  Age: 73 Year
  Sex: Male

DRUGS (4)
  1. ZOLPIDEM TARTRATE TABLETS [Suspect]
     Indication: INSOMNIA
     Dates: start: 20120501, end: 20120702
  2. ZOLPIDEM TARTRATE TABLETS [Suspect]
     Indication: INSOMNIA
     Dates: start: 20120501, end: 20120702
  3. OMEPRAZOLE [Concomitant]
     Indication: GASTROOESOPHAGEAL REFLUX DISEASE
     Route: 048
     Dates: end: 20120615
  4. CELEBREX [Concomitant]
     Indication: ARTHRITIS
     Route: 048
     Dates: end: 20120615

REACTIONS (5)
  - Burning mouth syndrome [Recovering/Resolving]
  - Infection [Recovered/Resolved]
  - Oral candidiasis [Recovered/Resolved]
  - Product substitution issue [None]
  - Product quality issue [None]
